FAERS Safety Report 6676278-0 (Version None)
Quarter: 2010Q2

REPORT INFORMATION
  Report Type: 
  Country: None (occurrence: None)
  Receive Date: 20100408
  Receipt Date: 20100330
  Transmission Date: 20101027
  Serious: Yes (Other)
  Sender: FDA-Public Use
  Company Number: 549150

PATIENT
  Sex: Male

DRUGS (1)
  1. MARCAINE [Suspect]
     Indication: ANAESTHESIA
     Dosage: CONTINUOUS, INJECTION
     Route: 003
     Dates: start: 20001218

REACTIONS (2)
  - CHONDROLYSIS [None]
  - DEVICE MALFUNCTION [None]
